FAERS Safety Report 5168272-6 (Version None)
Quarter: 2006Q4

REPORT INFORMATION
  Report Type: 
  Country: None (occurrence: None)
  Receive Date: 20061208
  Receipt Date: 20061120
  Transmission Date: 20070319
  Serious: Yes (Death, Hospitalization)
  Sender: FDA-Public Use
  Company Number: JP-BRISTOL-MYERS SQUIBB COMPANY-13593926

PATIENT
  Age: 47 Year
  Sex: Male

DRUGS (11)
  1. ABILIFY [Suspect]
     Indication: SCHIZOPHRENIA
     Dosage: 12MG 19-SEP-2006 TO 16-OCT-2006; 18 MG 17-OCT-2006 TO 17-NOV-2006
     Route: 048
     Dates: start: 20060919, end: 20061117
  2. HALOPERIDOL [Concomitant]
     Indication: INSOMNIA
     Dates: start: 20060919, end: 20061118
  3. HALOPERIDOL [Concomitant]
     Indication: HALLUCINATION
     Dates: start: 20060919, end: 20061118
  4. DIAZEPAM [Concomitant]
     Indication: ANXIOLYTIC THERAPY
     Route: 048
     Dates: start: 20060919, end: 20061016
  5. BIPERIDEN HYDROCHLORIDE TAB [Concomitant]
     Indication: PARKINSONISM
     Route: 048
     Dates: start: 20060919, end: 20061117
  6. BROMAZEPAM [Concomitant]
     Indication: ANXIOLYTIC THERAPY
     Route: 048
     Dates: start: 20060919, end: 20061117
  7. NITRAZEPAM [Concomitant]
     Indication: INSOMNIA
     Route: 048
     Dates: start: 20061117, end: 20061118
  8. PROMETHAZINE [Concomitant]
     Indication: INSOMNIA
     Route: 048
     Dates: start: 20061117, end: 20061117
  9. LEVOMEPROMAZINE MALEATE [Concomitant]
     Indication: INSOMNIA
     Route: 048
     Dates: start: 20061118, end: 20061118
  10. RISPERIDONE [Concomitant]
     Indication: INSOMNIA
     Route: 048
     Dates: start: 20061118, end: 20061118
  11. BIPERIDEN LACTATE [Concomitant]
     Indication: PARKINSONISM
     Route: 030
     Dates: start: 20061117, end: 20061117

REACTIONS (2)
  - CARDIAC FAILURE [None]
  - PSYCHOMOTOR HYPERACTIVITY [None]
